FAERS Safety Report 21763756 (Version 3)
Quarter: 2024Q2

REPORT INFORMATION
  Report Type: Spontaneous
  Country: IN (occurrence: IN)
  Receive Date: 20221222
  Receipt Date: 20240524
  Transmission Date: 20240716
  Serious: Yes (Other)
  Sender: FDA-Public Use
  Company Number: IN-ALLERGAN-2241380US

PATIENT
  Sex: Female

DRUGS (1)
  1. ACITRETIN [Suspect]
     Active Substance: ACITRETIN
     Indication: Ichthyosis
     Dosage: DOSAGE TEXT: 25 MG
     Route: 048

REACTIONS (2)
  - Epiphyses premature fusion [Unknown]
  - Off label use [Unknown]
